FAERS Safety Report 17455204 (Version 2)
Quarter: 2020Q1

REPORT INFORMATION
  Report Type: Spontaneous
  Country: JP (occurrence: JP)
  Receive Date: 20200225
  Receipt Date: 20200313
  Transmission Date: 20200409
  Serious: Yes (Other)
  Sender: FDA-Public Use
  Company Number: JP-009507513-2002JPN002106J

PATIENT
  Age: 83 Year
  Sex: Female

DRUGS (2)
  1. BELSOMRA [Suspect]
     Active Substance: SUVOREXANT
     Dosage: UNK
     Route: 048
  2. RAMELTEON [Suspect]
     Active Substance: RAMELTEON
     Dosage: UNK
     Route: 065

REACTIONS (2)
  - Decreased appetite [Recovering/Resolving]
  - Depressed level of consciousness [Recovering/Resolving]
